FAERS Safety Report 11802063 (Version 1)
Quarter: 2015Q4

REPORT INFORMATION
  Report Type: Report from Study
  Country: US (occurrence: US)
  Receive Date: 20151204
  Receipt Date: 20151204
  Transmission Date: 20160305
  Serious: Yes (Hospitalization)
  Sender: FDA-Public Use
  Company Number: US-PFIZER INC-2015409777

PATIENT
  Age: 75 Year
  Sex: Female
  Weight: 67 kg

DRUGS (5)
  1. SUNITINIB MALATE. [Suspect]
     Active Substance: SUNITINIB MALATE
     Indication: NEOPLASM OF THYMUS
     Dosage: 50 MG, DAILY ON DAYS 1-14, TOTAL DOSE 700 MG
     Route: 048
     Dates: start: 20150910, end: 20150923
  2. XARELTO [Concomitant]
     Active Substance: RIVAROXABAN
  3. METOPROLOL [Suspect]
     Active Substance: METOPROLOL
  4. MIRTAZAPINE. [Concomitant]
     Active Substance: MIRTAZAPINE
  5. LOSARTAN. [Suspect]
     Active Substance: LOSARTAN

REACTIONS (4)
  - Confusional state [Recovering/Resolving]
  - Platelet count decreased [Recovering/Resolving]
  - Urinary tract infection [Recovering/Resolving]
  - Dehydration [Recovering/Resolving]

NARRATIVE: CASE EVENT DATE: 20150926
